FAERS Safety Report 8443857-X (Version None)
Quarter: 2012Q2

REPORT INFORMATION
  Report Type: 
  Country: None (occurrence: None)
  Receive Date: 20120618
  Receipt Date: 20120607
  Transmission Date: 20120825
  Serious: Yes (Other)
  Sender: FDA-Public Use
  Company Number: US-US-EMD SERONO, INC.-7138816

PATIENT
  Sex: Female

DRUGS (1)
  1. REBIF [Suspect]
     Indication: MULTIPLE SCLEROSIS
     Route: 058
     Dates: start: 20050322

REACTIONS (10)
  - VOMITING [None]
  - PYREXIA [None]
  - HYPERHIDROSIS [None]
  - MALAISE [None]
  - CHILLS [None]
  - INJECTION SITE HAEMATOMA [None]
  - EXPIRED DRUG ADMINISTERED [None]
  - INAPPROPRIATE SCHEDULE OF DRUG ADMINISTRATION [None]
  - LIGAMENT RUPTURE [None]
  - ROTATOR CUFF SYNDROME [None]
